FAERS Safety Report 4673408-7 (Version None)
Quarter: 2005Q2

REPORT INFORMATION
  Report Type: 
  Country: None (occurrence: None)
  Receive Date: 20050525
  Receipt Date: 20050517
  Transmission Date: 20051028
  Serious: Yes (Hospitalization)
  Sender: FDA-Public Use
  Company Number: JP-ROCHE-404874

PATIENT
  Age: 36 Year
  Sex: Female

DRUGS (7)
  1. CLONAZEPAM [Suspect]
     Indication: DRUG USE FOR UNKNOWN INDICATION
     Route: 065
  2. HALOPERIDOL [Suspect]
     Indication: DRUG USE FOR UNKNOWN INDICATION
     Route: 065
  3. CLOCAPRAMINE [Suspect]
     Indication: DRUG USE FOR UNKNOWN INDICATION
     Route: 065
  4. ZOTEPINE [Suspect]
     Indication: DRUG USE FOR UNKNOWN INDICATION
     Route: 065
  5. BROMPERIDOL [Suspect]
     Indication: DRUG USE FOR UNKNOWN INDICATION
     Route: 065
  6. PEROSPIRONE HYDROCHLORIDE HYDRATE [Suspect]
     Indication: DRUG USE FOR UNKNOWN INDICATION
     Route: 065
  7. OLANZAPINE [Suspect]
     Indication: DRUG USE FOR UNKNOWN INDICATION
     Route: 065

REACTIONS (12)
  - ANOREXIA [None]
  - ATRIAL FIBRILLATION [None]
  - ATRIAL THROMBOSIS [None]
  - CATATONIA [None]
  - DEHYDRATION [None]
  - DELUSION [None]
  - ELECTROCARDIOGRAM ST-T CHANGE [None]
  - HALLUCINATION, AUDITORY [None]
  - INSOMNIA [None]
  - INTERNATIONAL NORMALISED RATIO DECREASED [None]
  - PALPITATIONS [None]
  - TACHYCARDIA [None]
